FAERS Safety Report 4581117-8 (Version None)
Quarter: 2005Q1

REPORT INFORMATION
  Report Type: 
  Country: None (occurrence: None)
  Receive Date: 20050127
  Receipt Date: 20041006
  Transmission Date: 20050727
  Serious: No
  Sender: FDA-Public Use
  Company Number: USA040876085

PATIENT
  Age: 5 Year
  Sex: Male
  Weight: 26 kg

DRUGS (1)
  1. STRATTERA [Suspect]
     Indication: IMPULSIVE BEHAVIOUR
     Dosage: 60 MG DAY
     Dates: start: 20040620

REACTIONS (6)
  - ABNORMAL BEHAVIOUR [None]
  - DRUG INEFFECTIVE [None]
  - EAR INFECTION [None]
  - FATIGUE [None]
  - NASOPHARYNGITIS [None]
  - RESTLESSNESS [None]
